FAERS Safety Report 14993799 (Version 3)
Quarter: 2018Q3

REPORT INFORMATION
  Report Type: Report from Study
  Country: DE (occurrence: DE)
  Receive Date: 20180611
  Receipt Date: 20180726
  Transmission Date: 20181010
  Serious: Yes (Hospitalization, Other)
  Sender: FDA-Public Use
  Company Number: DE-CONCORDIA PHARMACEUTICALS INC.-E2B_00012353

PATIENT
  Age: 34 Year
  Sex: Female
  Weight: 97 kg

DRUGS (24)
  1. PREDNISOLONE. [Suspect]
     Active Substance: PREDNISOLONE
     Dosage: 5 MG, QD
     Route: 048
     Dates: start: 20170921, end: 20170922
  2. PREDNISOLONE. [Suspect]
     Active Substance: PREDNISOLONE
     Dosage: 35 MG, QD
     Route: 048
     Dates: start: 20171020, end: 20171027
  3. AMPHO MORONAL [Suspect]
     Active Substance: AMPHOTERICIN B
     Indication: PRODUCT USED FOR UNKNOWN INDICATION
     Dosage: 10 MG, QID
     Route: 048
     Dates: start: 20180111, end: 20180215
  4. PREDNISOLONE. [Suspect]
     Active Substance: PREDNISOLONE
     Indication: PRODUCT USED FOR UNKNOWN INDICATION
     Dosage: 7.5 MG, QD
     Route: 048
     Dates: start: 20180221
  5. PREDNISOLONE. [Suspect]
     Active Substance: PREDNISOLONE
     Dosage: 40 MG, QD
     Route: 048
     Dates: start: 20171010, end: 20171028
  6. PREDNISOLONE. [Suspect]
     Active Substance: PREDNISOLONE
     Dosage: 10 MG, QD
     Route: 048
     Dates: start: 20171205, end: 20180418
  7. PREDNISOLONE. [Suspect]
     Active Substance: PREDNISOLONE
     Dosage: 60 MG, QD
     Route: 048
     Dates: start: 20171004, end: 20171019
  8. DEKRISTOL [Concomitant]
     Active Substance: CHOLECALCIFEROL
     Indication: PRODUCT USED FOR UNKNOWN INDICATION
     Dosage: 1000 OT, QD
     Route: 048
     Dates: start: 2017
  9. PREDNISOLONE. [Suspect]
     Active Substance: PREDNISOLONE
     Dosage: 25 MG, QD
     Route: 048
     Dates: start: 20171028, end: 20171204
  10. TRAMETINIB [Suspect]
     Active Substance: TRAMETINIB
     Indication: METASTATIC MALIGNANT MELANOMA
     Route: 048
  11. TRAMETINIB [Suspect]
     Active Substance: TRAMETINIB
     Dosage: 2 MG, QD
     Route: 048
     Dates: start: 20171020
  12. CLEXANE [Suspect]
     Active Substance: ENOXAPARIN SODIUM
     Dosage: 40 MG, QD
     Route: 058
     Dates: start: 20180308, end: 20180315
  13. DABRAFENIB [Suspect]
     Active Substance: DABRAFENIB
     Indication: METASTATIC MALIGNANT MELANOMA
     Dosage: 300 MG, QD (150 MG BID)
     Route: 048
     Dates: start: 20171020
  14. PREDNISOLONE. [Suspect]
     Active Substance: PREDNISOLONE
     Dosage: 25 MG, QD
     Route: 048
     Dates: start: 20171028, end: 20171205
  15. PREDNISOLONE. [Suspect]
     Active Substance: PREDNISOLONE
     Dosage: 100 MG, QD
     Route: 042
     Dates: start: 20170922, end: 20170924
  16. TAFINLAR [Suspect]
     Active Substance: DABRAFENIB MESYLATE
     Indication: METASTATIC MALIGNANT MELANOMA
     Route: 048
  17. CLEXANE [Suspect]
     Active Substance: ENOXAPARIN SODIUM
     Indication: PRODUCT USED FOR UNKNOWN INDICATION
     Dosage: 40 MG, QD
     Route: 058
     Dates: start: 20170921, end: 20171015
  18. DABRAFENIB [Suspect]
     Active Substance: DABRAFENIB
     Dosage: 300 MG, QD (150 MG BID)
     Route: 048
     Dates: start: 20170905, end: 20170921
  19. PREDNISOLONE. [Suspect]
     Active Substance: PREDNISOLONE
     Dosage: 5 MG, QD
     Route: 048
     Dates: start: 20180419
  20. TRAMETINIB [Suspect]
     Active Substance: TRAMETINIB
     Dosage: 2 MG, QD
     Route: 048
     Dates: start: 20170905, end: 20170921
  21. DIPROGENTA [Concomitant]
     Active Substance: BETAMETHASONE DIPROPIONATE\GENTAMICIN SULFATE
     Indication: PRODUCT USED FOR UNKNOWN INDICATION
     Dosage: 1 DF, QD
     Route: 003
     Dates: start: 20180419, end: 20180426
  22. PREDNISOLONE. [Suspect]
     Active Substance: PREDNISOLONE
     Dosage: 10 MG, QD
     Route: 048
     Dates: start: 20171205, end: 20180220
  23. PREDNISOLONE. [Suspect]
     Active Substance: PREDNISOLONE
     Dosage: 80 MG, QD
     Route: 048
     Dates: start: 20170924, end: 20171003
  24. PANTOPRAZOLE [Concomitant]
     Active Substance: PANTOPRAZOLE
     Indication: PRODUCT USED FOR UNKNOWN INDICATION
     Dosage: 40 MG, QD
     Route: 048
     Dates: start: 2017

REACTIONS (11)
  - Hot flush [Recovered/Resolved]
  - Body temperature fluctuation [Recovered/Resolved]
  - Pain in extremity [Recovered/Resolved]
  - Erythema multiforme [Recovered/Resolved]
  - Dry skin [Recovered/Resolved]
  - Aphthous ulcer [Recovered/Resolved]
  - Infective glossitis [Recovered/Resolved]
  - Pyrexia [Recovered/Resolved]
  - Urinary tract infection [Recovered/Resolved]
  - Erysipelas [Recovered/Resolved]
  - Arthralgia [Recovered/Resolved]

NARRATIVE: CASE EVENT DATE: 20171012
